FAERS Safety Report 13460882 (Version 3)
Quarter: 2021Q1

REPORT INFORMATION
  Report Type: Report from Study
  Country: SE (occurrence: SE)
  Receive Date: 20170420
  Receipt Date: 20210216
  Transmission Date: 20210419
  Serious: Yes (Hospitalization)
  Sender: FDA-Public Use
  Company Number: SE-ROCHE-1730588

PATIENT
  Age: 50 Year
  Sex: Male
  Weight: 67 kg

DRUGS (69)
  1. OCRELIZUMAB. [Suspect]
     Active Substance: OCRELIZUMAB
     Dosage: WEEK 48
     Route: 042
     Dates: start: 20121113, end: 20121113
  2. PLACEBO [Suspect]
     Active Substance: UNSPECIFIED INGREDIENT
     Indication: RELAPSING-REMITTING MULTIPLE SCLEROSIS
     Route: 058
     Dates: start: 20111212
  3. OCRELIZUMAB. [Suspect]
     Active Substance: OCRELIZUMAB
     Indication: RELAPSING-REMITTING MULTIPLE SCLEROSIS
     Dosage: FREQUENCY AS PER PROTOCOL: DUAL INFUSION (300MG EACH) FOR THE FIRST CYCLE OF OLE OCRELIZUMAB AND THE
     Route: 042
     Dates: start: 20131024, end: 20131024
  4. CETRIZINE [Concomitant]
     Active Substance: CETIRIZINE HYDROCHLORIDE
     Dates: start: 20131106
  5. PARACETAMOL [Concomitant]
     Active Substance: ACETAMINOPHEN
     Dates: start: 20121113
  6. VALACICLOVIR [Concomitant]
     Active Substance: VALACYCLOVIR HYDROCHLORIDE
     Indication: HERPES ZOSTER
     Dates: start: 20141124
  7. OCRELIZUMAB. [Suspect]
     Active Substance: OCRELIZUMAB
     Dosage: WEEK 2
     Route: 042
     Dates: start: 20111227, end: 20111227
  8. OCRELIZUMAB. [Suspect]
     Active Substance: OCRELIZUMAB
     Dosage: WEEK 96
     Route: 042
     Dates: start: 20150826, end: 20150826
  9. OCRELIZUMAB. [Suspect]
     Active Substance: OCRELIZUMAB
     Dosage: DELAYED DOSING VISIT 21 DEC 2017
     Route: 042
     Dates: start: 20171221, end: 20171221
  10. CETRIZINE [Concomitant]
     Active Substance: CETIRIZINE HYDROCHLORIDE
     Dates: start: 20140408
  11. PARACETAMOL [Concomitant]
     Active Substance: ACETAMINOPHEN
     Dates: start: 20150826
  12. METHYLPREDNISOLONE. [Concomitant]
     Active Substance: METHYLPREDNISOLONE
     Dates: start: 20130429, end: 20130429
  13. METHYLPREDNISOLONE. [Concomitant]
     Active Substance: METHYLPREDNISOLONE
     Dates: start: 20150826, end: 20150826
  14. IPREN [Concomitant]
     Active Substance: IBUPROFEN
     Dates: start: 20111212, end: 20111218
  15. PLACEBO [Suspect]
     Active Substance: UNSPECIFIED INGREDIENT
     Route: 058
     Dates: start: 20131015, end: 20131022
  16. OCRELIZUMAB. [Suspect]
     Active Substance: OCRELIZUMAB
     Dosage: WEEK 48
     Route: 042
     Dates: start: 20140925, end: 20140925
  17. CETRIZINE [Concomitant]
     Active Substance: CETIRIZINE HYDROCHLORIDE
     Dates: start: 20131024
  18. CETRIZINE [Concomitant]
     Active Substance: CETIRIZINE HYDROCHLORIDE
     Dates: start: 20140925
  19. CETRIZINE [Concomitant]
     Active Substance: CETIRIZINE HYDROCHLORIDE
     Dates: start: 20160210
  20. CETRIZINE [Concomitant]
     Active Substance: CETIRIZINE HYDROCHLORIDE
     Dosage: SUBSEQUENT DOSE: 19/JAN/2017, 29/JUN/2017, 21/DEC/2017, 01/JUN/2018, 29/APR/2019, 30/OCT/2019, 16/SE
     Dates: start: 20160727
  21. PARACETAMOL [Concomitant]
     Active Substance: ACETAMINOPHEN
     Dates: start: 20131106
  22. METHYLPREDNISOLONE. [Concomitant]
     Active Substance: METHYLPREDNISOLONE
     Dates: start: 20121113, end: 20121113
  23. ALVEDON [Concomitant]
     Active Substance: ACETAMINOPHEN
     Indication: NASOPHARYNGITIS
     Dates: start: 20111227
  24. ALVEDON [Concomitant]
     Active Substance: ACETAMINOPHEN
     Dates: start: 20120528
  25. OCRELIZUMAB. [Suspect]
     Active Substance: OCRELIZUMAB
     Dosage: WEEK 2
     Route: 042
     Dates: start: 20131106, end: 20131106
  26. OCRELIZUMAB. [Suspect]
     Active Substance: OCRELIZUMAB
     Dosage: OLE?WEEK 312
     Route: 042
     Dates: start: 20191030, end: 20191030
  27. OCRELIZUMAB. [Suspect]
     Active Substance: OCRELIZUMAB
     Dosage: OLE?WEEK 360
     Route: 042
     Dates: start: 20200916, end: 20200916
  28. CETRIZINE [Concomitant]
     Active Substance: CETIRIZINE HYDROCHLORIDE
     Dates: start: 20111227
  29. CETRIZINE [Concomitant]
     Active Substance: CETIRIZINE HYDROCHLORIDE
     Dates: start: 20150311
  30. CETRIZINE [Concomitant]
     Active Substance: CETIRIZINE HYDROCHLORIDE
     Dates: start: 20150826
  31. PARACETAMOL [Concomitant]
     Active Substance: ACETAMINOPHEN
     Dates: start: 20121113
  32. PARACETAMOL [Concomitant]
     Active Substance: ACETAMINOPHEN
     Dates: start: 20140925
  33. PARACETAMOL [Concomitant]
     Active Substance: ACETAMINOPHEN
     Dates: start: 20150311
  34. METHYLPREDNISOLONE. [Concomitant]
     Active Substance: METHYLPREDNISOLONE
     Dates: start: 20150311, end: 20150311
  35. PARACETAMOL [Concomitant]
     Active Substance: ACETAMINOPHEN
     Dates: start: 20130429
  36. OCRELIZUMAB. [Suspect]
     Active Substance: OCRELIZUMAB
     Dosage: WEEK 24
     Route: 042
     Dates: start: 20120528, end: 20120528
  37. OCRELIZUMAB. [Suspect]
     Active Substance: OCRELIZUMAB
     Dosage: OLE?WEEK 144
     Route: 042
     Dates: start: 20160727, end: 20160727
  38. OCRELIZUMAB. [Suspect]
     Active Substance: OCRELIZUMAB
     Dosage: OLE?WEEK 264
     Route: 042
     Dates: start: 20181113, end: 20181113
  39. CETRIZINE [Concomitant]
     Active Substance: CETIRIZINE HYDROCHLORIDE
     Dates: start: 20121113
  40. PARACETAMOL [Concomitant]
     Active Substance: ACETAMINOPHEN
     Dates: start: 20111212
  41. METHYLPREDNISOLONE. [Concomitant]
     Active Substance: METHYLPREDNISOLONE
     Dates: start: 20111227, end: 20111227
  42. METHYLPREDNISOLONE. [Concomitant]
     Active Substance: METHYLPREDNISOLONE
     Dates: start: 20160210, end: 20160210
  43. METHYLPREDNISOLONE. [Concomitant]
     Active Substance: METHYLPREDNISOLONE
     Dates: start: 20160727, end: 20160727
  44. OCRELIZUMAB. [Suspect]
     Active Substance: OCRELIZUMAB
     Dosage: WEEK 72
     Route: 042
     Dates: start: 20130429, end: 20130429
  45. OCRELIZUMAB. [Suspect]
     Active Substance: OCRELIZUMAB
     Dosage: WEEK 72
     Route: 042
     Dates: start: 20150311, end: 20150311
  46. OCRELIZUMAB. [Suspect]
     Active Substance: OCRELIZUMAB
     Dosage: WEEK 120
     Route: 042
     Dates: start: 20160210, end: 20160210
  47. OCRELIZUMAB. [Suspect]
     Active Substance: OCRELIZUMAB
     Dosage: OLE?WEEK 240
     Route: 042
     Dates: start: 20180601, end: 20180601
  48. OCRELIZUMAB. [Suspect]
     Active Substance: OCRELIZUMAB
     Dosage: OLE?WEEK 288
     Route: 042
     Dates: start: 20190429, end: 20190429
  49. METHYLPREDNISOLONE. [Concomitant]
     Active Substance: METHYLPREDNISOLONE
     Dates: start: 20120528, end: 20120528
  50. METHYLPREDNISOLONE. [Concomitant]
     Active Substance: METHYLPREDNISOLONE
     Dates: start: 20131024, end: 20131024
  51. METHYLPREDNISOLONE. [Concomitant]
     Active Substance: METHYLPREDNISOLONE
     Dates: start: 20140925, end: 20140925
  52. COCILLANA?ETYFIN [Concomitant]
     Active Substance: ETHYLMORPHINE HYDROCHLORIDE\HERBALS
     Indication: BRONCHITIS
     Dosage: SUBSEQUENT DOSE: 14/NOV/2016, 08/JUL/2017
     Dates: start: 20131007
  53. OCRELIZUMAB. [Suspect]
     Active Substance: OCRELIZUMAB
     Dosage: WEEK 24
     Route: 042
     Dates: start: 20140408, end: 20140408
  54. OCRELIZUMAB. [Suspect]
     Active Substance: OCRELIZUMAB
     Dosage: OLE?WEEK 192
     Route: 042
     Dates: start: 20170629, end: 20170629
  55. CETRIZINE [Concomitant]
     Active Substance: CETIRIZINE HYDROCHLORIDE
     Dates: start: 20120528
  56. PARACETAMOL [Concomitant]
     Active Substance: ACETAMINOPHEN
     Dates: start: 20130429
  57. PARACETAMOL [Concomitant]
     Active Substance: ACETAMINOPHEN
     Dosage: SUBSEQUENT DOSE: 19/JAN/2017, 29/JUN/2017, 21/DEC/2017, 01/JUN/2018, 13/NOV/2018,
     Dates: start: 20160727
  58. METHYLPREDNISOLONE. [Concomitant]
     Active Substance: METHYLPREDNISOLONE
     Dosage: SUBSEQUENT DOSE: 19/JAN/2017, 29/JUN/2017, 21/DEC/2017, 01/JUN/2018, 29/APR/2019, 30/OCT/2019, 16/SE
     Dates: start: 20111212, end: 20111212
  59. METHYLPREDNISOLONE. [Concomitant]
     Active Substance: METHYLPREDNISOLONE
     Dates: start: 20131106, end: 20131106
  60. METHYLPREDNISOLONE. [Concomitant]
     Active Substance: METHYLPREDNISOLONE
     Dates: start: 20140408, end: 20140408
  61. ALVEDON [Concomitant]
     Active Substance: ACETAMINOPHEN
     Dates: start: 20131024
  62. PARACETAMOL [Concomitant]
     Active Substance: ACETAMINOPHEN
     Dates: start: 20140408
  63. PARACETAMOL [Concomitant]
     Active Substance: ACETAMINOPHEN
     Dates: start: 20131106
  64. OCRELIZUMAB. [Suspect]
     Active Substance: OCRELIZUMAB
     Indication: RELAPSING-REMITTING MULTIPLE SCLEROSIS
     Dosage: FREQUENCY: TWO INTRAVENOUS INFUSIONS SEPARATED BY 14 DAYS FOR THE FIRST 24 WEEKS, FOLLOWED BY SINGLE
     Route: 042
     Dates: start: 20111212, end: 20111212
  65. OCRELIZUMAB. [Suspect]
     Active Substance: OCRELIZUMAB
     Dosage: DELAYED DOSING VISIT 19 JAN 2017
     Route: 042
     Dates: start: 20170119, end: 20170119
  66. CETRIZINE [Concomitant]
     Active Substance: CETIRIZINE HYDROCHLORIDE
     Dates: start: 20111212
  67. CETRIZINE [Concomitant]
     Active Substance: CETIRIZINE HYDROCHLORIDE
     Dates: start: 20130429
  68. PARACETAMOL [Concomitant]
     Active Substance: ACETAMINOPHEN
     Dates: start: 20160210
  69. ALVEDON [Concomitant]
     Active Substance: ACETAMINOPHEN
     Dosage: SUBSEQUENT DOSE: 01/JUN/2018, 29/APR/2019, 30/OCT/2019, 16/SEP/2020
     Dates: start: 20200112, end: 20200117

REACTIONS (1)
  - Pneumonia [Recovered/Resolved]

NARRATIVE: CASE EVENT DATE: 20160308
